FAERS Safety Report 25299146 (Version 1)
Quarter: 2025Q2

REPORT INFORMATION
  Report Type: Spontaneous
  Country: HR (occurrence: HR)
  Receive Date: 20250512
  Receipt Date: 20250512
  Transmission Date: 20250716
  Serious: Yes (Hospitalization, Other)
  Sender: ASTELLAS
  Company Number: HR-ASTELLAS-2025-AER-025339

PATIENT
  Age: 8 Year
  Sex: Male

DRUGS (1)
  1. ISAVUCONAZONIUM SULFATE [Suspect]
     Active Substance: ISAVUCONAZONIUM SULFATE
     Indication: Mucormycosis
     Route: 050
     Dates: start: 202406, end: 202504

REACTIONS (7)
  - Anal abscess [Recovered/Resolved]
  - Deep vein thrombosis [Recovered/Resolved]
  - Cystitis haemorrhagic [Recovered/Resolved]
  - BK virus infection [Recovered/Resolved]
  - Acute kidney injury [Recovered/Resolved]
  - Renal tubular disorder [Recovered/Resolved]
  - Nephrocalcinosis [Recovered/Resolved]

NARRATIVE: CASE EVENT DATE: 20240601
